FAERS Safety Report 22607755 (Version 1)
Quarter: 2023Q2

REPORT INFORMATION
  Report Type: Spontaneous
  Country: US (occurrence: US)
  Receive Date: 20230616
  Receipt Date: 20230616
  Transmission Date: 20230722
  Serious: Yes (Other)
  Sender: FDA-Public Use
  Company Number: US-SA-SAC20230615000270

PATIENT
  Age: 75 Year
  Sex: Female

DRUGS (3)
  1. DUPIXENT [Suspect]
     Active Substance: DUPILUMAB
     Indication: Dermatitis atopic
     Dosage: 300 MG, QOW
     Route: 058
  2. ASPIRIN [Concomitant]
     Active Substance: ASPIRIN
     Dosage: 81 MG
  3. NITROGLYCERIN [Concomitant]
     Active Substance: NITROGLYCERIN
     Dosage: 0.4 MG

REACTIONS (4)
  - Pain [Not Recovered/Not Resolved]
  - Rash [Not Recovered/Not Resolved]
  - Discomfort [Not Recovered/Not Resolved]
  - Insomnia [Not Recovered/Not Resolved]

NARRATIVE: CASE EVENT DATE: 20220801
